FAERS Safety Report 5898857-0 (Version None)
Quarter: 2008Q3

REPORT INFORMATION
  Report Type: 
  Country: None (occurrence: None)
  Receive Date: 20080925
  Receipt Date: 20080915
  Transmission Date: 20090109
  Serious: Yes (Hospitalization)
  Sender: FDA-Public Use
  Company Number: FR-ABBOTT-07P-056-0427766-00

PATIENT
  Sex: Male
  Weight: 61 kg

DRUGS (13)
  1. HUMIRA [Suspect]
     Indication: CROHN'S DISEASE
     Route: 058
     Dates: start: 20070502
  2. HUMIRA [Suspect]
     Route: 058
     Dates: start: 20070502, end: 20070502
  3. HUMIRA [Suspect]
     Route: 058
     Dates: start: 20070516, end: 20070516
  4. HUMIRA [Suspect]
     Route: 058
     Dates: start: 20070530, end: 20070530
  5. TRIMEBUTINE MALEATE [Concomitant]
     Indication: CROHN'S DISEASE
     Dates: start: 20070406, end: 20070523
  6. MONTMORILLONITE [Concomitant]
     Indication: CROHN'S DISEASE
     Dates: start: 20070406, end: 20070523
  7. ACETAMINOPHEN [Concomitant]
     Indication: ABDOMINAL PAIN
     Dates: start: 20070504
  8. FRUBIENZYM [Concomitant]
     Indication: OROPHARYNGEAL PAIN
     Dates: start: 20070501, end: 20070515
  9. PREDNISOLONE SODIUM SULFOBENZOATE [Concomitant]
     Indication: CROHN'S DISEASE
     Dates: start: 20070502, end: 20070522
  10. PREDNISOLONE SODIUM SULFOBENZOATE [Concomitant]
     Dates: start: 20070426, end: 20070530
  11. PREDNISOLONE SODIUM SULFOBENZOATE [Concomitant]
     Dates: start: 20070531, end: 20070606
  12. PREDNISOLONE SODIUM SULFOBENZOATE [Concomitant]
     Dates: start: 20070607, end: 20070613
  13. PREDNISOLONE SODIUM SULFOBENZOATE [Concomitant]
     Dates: start: 20070614, end: 20070621

REACTIONS (1)
  - ACUTE VESTIBULAR SYNDROME [None]
